FAERS Safety Report 25146210 (Version 2)
Quarter: 2025Q3

REPORT INFORMATION
  Report Type: Spontaneous
  Country: CN (occurrence: CN)
  Receive Date: 20250401
  Receipt Date: 20250803
  Transmission Date: 20251020
  Serious: Yes (Other)
  Sender: ALEXION PHARMACEUTICALS
  Company Number: CN-AstraZeneca-CH-00837550A

PATIENT
  Sex: Male

DRUGS (1)
  1. BUDESONIDE\FORMOTEROL\GLYCOPYRRONIUM [Suspect]
     Active Substance: BUDESONIDE\FORMOTEROL\GLYCOPYRRONIUM
     Route: 065

REACTIONS (6)
  - Paralysis [Unknown]
  - Oxygen saturation decreased [Recovered/Resolved]
  - Cardiac failure [Unknown]
  - Device delivery system issue [Unknown]
  - Device use issue [Unknown]
  - Wrong technique in product usage process [Unknown]
